FAERS Safety Report 5847768-5 (Version None)
Quarter: 2008Q3

REPORT INFORMATION
  Report Type: 
  Country: None (occurrence: None)
  Receive Date: 20080818
  Receipt Date: 20080811
  Transmission Date: 20090109
  Serious: Yes (Death, Hospitalization)
  Sender: FDA-Public Use
  Company Number: US-KINGPHARMUSA00001-K200800953

PATIENT

DRUGS (7)
  1. SEPTRA [Suspect]
  2. POLYMYXIN B                        /00106602/ [Suspect]
     Dosage: 1.4 MIU, QD
     Route: 051
  3. AZITHROMYCIN [Suspect]
  4. VANCOMYCIN                         /00314402/ [Suspect]
     Route: 042
  5. FUROSEMIDE                         /00032602/ [Suspect]
  6. LOSARTAN [Suspect]
  7. HYDROCHLOROTHIAZIDE [Suspect]

REACTIONS (2)
  - NEPHROPATHY TOXIC [None]
  - POTENTIATING DRUG INTERACTION [None]
